FAERS Safety Report 5097478-X (Version None)
Quarter: 2006Q3

REPORT INFORMATION
  Report Type: 
  Country: None (occurrence: None)
  Receive Date: 20060901
  Receipt Date: 20060815
  Transmission Date: 20061208
  Serious: Yes (Death)
  Sender: FDA-Public Use
  Company Number: US200607004876

PATIENT
  Age: 10 Year
  Sex: Male

DRUGS (2)
  1. STRATTERA [Suspect]
     Indication: ATTENTION DEFICIT/HYPERACTIVITY DISORDER
     Dosage: 24 MG, EACH EVENING
     Dates: start: 20040524
  2. CONCERTA [Concomitant]

REACTIONS (2)
  - ACCIDENTAL DEATH [None]
  - INJURY ASPHYXIATION [None]
